FAERS Safety Report 9162299 (Version 1)
Quarter: 2013Q1

REPORT INFORMATION
  Report Type: Spontaneous
  Country: DK (occurrence: DK)
  Receive Date: 20130314
  Receipt Date: 20130314
  Transmission Date: 20140127
  Serious: Yes (Hospitalization)
  Sender: FDA-Public Use
  Company Number: PHBS1997DK03550

PATIENT
  Age: 23 Year
  Sex: Male

DRUGS (2)
  1. LEPONEX [Suspect]
     Dosage: 700 MG, DAILY
     Route: 048
  2. TRILEPTAL [Concomitant]
     Indication: EPILEPSY
     Dosage: 1.2 G, DAILY
     Route: 048
     Dates: start: 19970827

REACTIONS (1)
  - Drug level decreased [Not Recovered/Not Resolved]
